FAERS Safety Report 17335916 (Version 1)
Quarter: 2020Q1

REPORT INFORMATION
  Report Type: Spontaneous
  Country: FR (occurrence: FR)
  Receive Date: 20200129
  Receipt Date: 20200129
  Transmission Date: 20200409
  Serious: Yes (Life-Threatening)
  Sender: FDA-Public Use
  Company Number: FR-SUN PHARMACEUTICAL INDUSTRIES LTD-2020RR-234708

PATIENT
  Age: 49 Year
  Sex: Male

DRUGS (5)
  1. MIRTAZAPINE. [Suspect]
     Active Substance: MIRTAZAPINE
     Indication: POISONING DELIBERATE
     Dosage: DOSE INCONNUE ()
     Route: 048
     Dates: start: 20190924, end: 20190924
  2. TEMAZEPAM. [Suspect]
     Active Substance: TEMAZEPAM
     Indication: POISONING DELIBERATE
     Dosage: DOSE INCONNUE ()
     Route: 048
     Dates: start: 20190924, end: 20190924
  3. CODEINE [Suspect]
     Active Substance: CODEINE
     Indication: POISONING DELIBERATE
     Dosage: DOSE INCONNUE ()
     Route: 048
     Dates: start: 20190924, end: 20190924
  4. CYAMEMAZINE [Suspect]
     Active Substance: CYAMEMAZINE
     Indication: POISONING DELIBERATE
     Dosage: DOSE INCONNUE ()
     Route: 048
     Dates: start: 20190924, end: 20190924
  5. CLOMIPRAMINE (CHLORHYDRATE DE) [Suspect]
     Active Substance: CLOMIPRAMINE HYDROCHLORIDE
     Indication: POISONING DELIBERATE
     Dosage: DOSE INCONNUE ()
     Route: 048
     Dates: start: 20190924, end: 20190924

REACTIONS (1)
  - Coma [Recovered/Resolved]

NARRATIVE: CASE EVENT DATE: 20190924
